FAERS Safety Report 17118565 (Version 1)
Quarter: 2019Q4

REPORT INFORMATION
  Report Type: Spontaneous
  Country: IT (occurrence: IT)
  Receive Date: 20191206
  Receipt Date: 20191206
  Transmission Date: 20200122
  Serious: Yes (Other)
  Sender: FDA-Public Use
  Company Number: IT-AUROBINDO-AUR-APL-2019-103091

PATIENT
  Age: 79 Year
  Sex: Female

DRUGS (1)
  1. CIPROFLOXACIN. [Suspect]
     Active Substance: CIPROFLOXACIN
     Indication: TRACHEOBRONCHITIS
     Dosage: 1 DOSAGE FORM, TOTAL
     Route: 048
     Dates: start: 20191024, end: 20191024

REACTIONS (4)
  - Throat tightness [Recovering/Resolving]
  - Dyspnoea [Recovering/Resolving]
  - Ocular hyperaemia [Recovering/Resolving]
  - Abnormal sensation in eye [Recovering/Resolving]

NARRATIVE: CASE EVENT DATE: 20191024
